FAERS Safety Report 11130379 (Version 2)
Quarter: 2015Q2

REPORT INFORMATION
  Report Type: Spontaneous
  Country: PL (occurrence: PL)
  Receive Date: 20150522
  Receipt Date: 20150603
  Transmission Date: 20150821
  Serious: Yes (Death, Hospitalization)
  Sender: FDA-Public Use
  Company Number: PL-ROCHE-1580766

PATIENT
  Age: 71 Year
  Sex: Female
  Weight: 89 kg

DRUGS (1)
  1. ACTILYSE [Suspect]
     Active Substance: ALTEPLASE
     Indication: ISCHAEMIC STROKE
     Dosage: STARTED AT 1810 HOURS
     Route: 042
     Dates: start: 20121029, end: 20121029

REACTIONS (2)
  - Blood pressure increased [Unknown]
  - Brain oedema [Fatal]

NARRATIVE: CASE EVENT DATE: 20121030
